FAERS Safety Report 5874703-6 (Version None)
Quarter: 2008Q3

REPORT INFORMATION
  Report Type: 
  Country: None (occurrence: None)
  Receive Date: 20080909
  Receipt Date: 20080905
  Transmission Date: 20090109
  Serious: Yes (Death)
  Sender: FDA-Public Use
  Company Number: JP-BRISTOL-MYERS SQUIBB COMPANY-14319685

PATIENT
  Age: 41 Year
  Sex: Male

DRUGS (3)
  1. TAXOL [Suspect]
     Indication: GASTRIC CANCER
     Dosage: ALSO TOOK IV AT 120MG,1/1/ WEEK,ON 26MAY08,TO 10JUN08( 3 DAYS).
     Route: 033
     Dates: start: 20080703, end: 20080703
  2. KENACORT [Suspect]
     Indication: MALIGNANT ASCITES
     Route: 033
     Dates: start: 20080703, end: 20080703
  3. FENTANYL CITRATE [Concomitant]
     Route: 042
     Dates: start: 20080628

REACTIONS (1)
  - INTESTINAL PERFORATION [None]
